FAERS Safety Report 14285432 (Version 1)
Quarter: 2017Q4

REPORT INFORMATION
  Report Type: Spontaneous
  Country: US (occurrence: US)
  Receive Date: 20171214
  Receipt Date: 20171214
  Transmission Date: 20180321
  Serious: No
  Sender: FDA-Public Use
  Company Number: US-PFIZER INC-2017488578

PATIENT
  Age: 53 Year
  Sex: Female
  Weight: 56.7 kg

DRUGS (21)
  1. PROVENTIL [Concomitant]
     Active Substance: ALBUTEROL
     Dosage: TAKE 3 MLS BY NEBULIZATION EVERY 6 (SIX) HOURS AS NEEDED (2.5 MG/3ML)
     Route: 055
  2. LASIX [Concomitant]
     Active Substance: FUROSEMIDE
     Dosage: 20 MG, 2X/DAY
     Route: 048
  3. DUONEB [Concomitant]
     Active Substance: ALBUTEROL SULFATE\IPRATROPIUM BROMIDE
     Dosage: AKE 3 MLS BY NEBULIZATION 4 (FOUR) TIMES DAILY(IPRATROPIUM BROMIDE 0.5 MG/ALBUTEROL SULFATE 2.5 MG)
     Route: 055
  4. PROVENTIL HFA [Concomitant]
     Active Substance: ALBUTEROL SULFATE
     Dosage: 216 UG, 2X/DAY (INHALE 2 PUFFS INTO THE LUNGS 2 (TWO) TIMES DAILY)
     Route: 055
  5. VENTOLIN HFA [Concomitant]
     Active Substance: ALBUTEROL SULFATE
     Dosage: 216 UG, 2X/DAY (INHALE 2 PUFFS INTO THE LUNGS 2 (TWO) TIMES DAILY)
     Route: 055
  6. ZANTAC [Concomitant]
     Active Substance: RANITIDINE HYDROCHLORIDE
     Dosage: 150 MG, 2X/DAY
     Route: 048
  7. DESYREL [Concomitant]
     Active Substance: TRAZODONE HYDROCHLORIDE
     Dosage: 50 MG, AS NEEDED (TAKE 50 MG BY MOUTH NIGHTLY AS NEEDED)
     Route: 048
  8. XANAX [Concomitant]
     Active Substance: ALPRAZOLAM
     Indication: SLEEP APNOEA SYNDROME
     Dosage: TAKE 1 TABLET BY MOUTH DAILY AS NEEDED
     Route: 048
  9. MARINOL [Concomitant]
     Active Substance: DRONABINOL
     Dosage: 2.5 MG, 2X/DAY
     Route: 048
  10. TOPROL XL [Concomitant]
     Active Substance: METOPROLOL SUCCINATE
     Dosage: 25 MG/24H, DAILY
     Route: 048
  11. NICODERM CQ [Concomitant]
     Active Substance: NICOTINE
     Dosage: 1 DF, DAILY(21 MG/24HR: PLACE 1 PATCH ONTO THE SKIN DAILY)
  12. FISH OIL [Concomitant]
     Active Substance: FISH OIL
     Dosage: UNK , DAILY
     Route: 048
  13. VFEND [Suspect]
     Active Substance: VORICONAZOLE
     Indication: ASPERGILLUS INFECTION
     Dosage: 200 MG, 2X/DAY
     Route: 048
     Dates: start: 2016
  14. MYCOSTATIN [Concomitant]
     Active Substance: NYSTATIN
     Dosage: 200000 IU, 4X/DAY
  15. OXYCODONE-ACETAMINOPHEN [Concomitant]
     Active Substance: ACETAMINOPHEN\OXYCODONE HYDROCHLORIDE
     Dosage: 1 DF, AS NEEDED (TAKE 1 TABLET BY MOUTH 3 (THREE) TIMES DAILY AS NEEDED)
     Route: 048
  16. XANAX [Concomitant]
     Active Substance: ALPRAZOLAM
     Indication: ANXIETY
  17. PERCOCET [Concomitant]
     Active Substance: ACETAMINOPHEN\OXYCODONE HYDROCHLORIDE
     Dosage: OXYCODONE HYDROCHLORIDE-10 MG, PARACETAMOL-325 MG, 2 L/MIN BY NASAL ROUTE, AS NEEDED
     Route: 045
  18. COUMADIN [Concomitant]
     Active Substance: WARFARIN SODIUM
     Dosage: 2.5 MG, DAILY
     Route: 048
  19. LEVAQUIN [Concomitant]
     Active Substance: LEVOFLOXACIN
     Dosage: 500 MG, DAILY
     Route: 048
  20. KLOR-CON [Concomitant]
     Active Substance: POTASSIUM CHLORIDE
     Dosage: 20 MEQ, 2X/DAY
     Route: 048
  21. TOPAMAX [Concomitant]
     Active Substance: TOPIRAMATE
     Dosage: 100 MG, 2X/DAY
     Route: 048

REACTIONS (2)
  - Haemoptysis [Not Recovered/Not Resolved]
  - Drug dose omission [Not Recovered/Not Resolved]

NARRATIVE: CASE EVENT DATE: 201711
